FAERS Safety Report 10238875 (Version 1)
Quarter: 2014Q2

REPORT INFORMATION
  Report Type: Spontaneous
  Country: AL (occurrence: AL)
  Receive Date: 20140616
  Receipt Date: 20140616
  Transmission Date: 20141212
  Serious: Yes (Hospitalization, Disabling, Other)
  Sender: FDA-Public Use
  Company Number: AL-ASTRAZENECA-2014SE39705

PATIENT
  Age: 45 Year
  Sex: Female
  Weight: 74 kg

DRUGS (2)
  1. MARCAINE [Suspect]
     Indication: SPINAL ANAESTHESIA
     Route: 037
  2. ATROPINE SULFATE [Concomitant]

REACTIONS (4)
  - Depression [Unknown]
  - Paraparesis [Recovering/Resolving]
  - Somnolence [Unknown]
  - Hypotension [Recovered/Resolved]
